FAERS Safety Report 15084585 (Version 1)
Quarter: 2018Q2

REPORT INFORMATION
  Report Type: Spontaneous
  Country: US (occurrence: US)
  Receive Date: 20180608
  Receipt Date: 20180608
  Transmission Date: 20180711
  Serious: Yes (Life-Threatening)
  Sender: FDA-Public Use
  Company Number: None

PATIENT
  Age: 64 Year
  Sex: Female

DRUGS (11)
  1. METOLAZONE 2.5MG QD [Concomitant]
     Dates: start: 20170511
  2. DALIRESP 500MCG [Concomitant]
     Dates: start: 20140428
  3. ROSUVASTATIN 10MG QPM [Concomitant]
     Dates: start: 20170315
  4. LONHALA MAGNAIR [Suspect]
     Active Substance: GLYCOPYRROLATE
     Indication: CHRONIC OBSTRUCTIVE PULMONARY DISEASE
     Route: 055
     Dates: start: 20180606, end: 20180606
  5. RABEPRAZOLE 20MG QAM [Concomitant]
     Dates: start: 20140313
  6. CLOPIDOGREL 75MG QD [Concomitant]
     Dates: start: 20140428
  7. FUROSEMIDE 120MG BID [Concomitant]
     Dates: start: 20130517
  8. TRAZODONE 50MG PRN QHS [Concomitant]
     Dates: start: 20171226
  9. PRAMIPEXOLE 0.25MG BID [Concomitant]
     Dates: start: 20140519
  10. METOPROLOL TARTRATE 25MG BID [Concomitant]
     Dates: start: 20140519
  11. TRESIBA 100 UNIT/ML [Concomitant]
     Dates: start: 20180605

REACTIONS (5)
  - Heart rate increased [None]
  - Chest discomfort [None]
  - Chest pain [None]
  - Dyspnoea [None]
  - Dizziness [None]

NARRATIVE: CASE EVENT DATE: 20180606
